FAERS Safety Report 4494356-1 (Version None)
Quarter: 2004Q4

REPORT INFORMATION
  Report Type: 
  Country: None (occurrence: None)
  Receive Date: 20041102
  Receipt Date: 20041020
  Transmission Date: 20050328
  Serious: Yes (Hospitalization, Other)
  Sender: FDA-Public Use
  Company Number: USA040874428

PATIENT
  Age: 60 Year
  Sex: Female

DRUGS (7)
  1. EVISTA [Suspect]
     Indication: OSTEOPENIA
     Dates: start: 20030101
  2. FORTEO [Concomitant]
  3. CALCIUM [Concomitant]
  4. ACIPHEX [Concomitant]
  5. MORPHINE [Concomitant]
  6. XANAX (ALPRAZOLAM DUM) [Concomitant]
  7. MIACALCIN [Concomitant]

REACTIONS (6)
  - BONE DENSITY DECREASED [None]
  - FALL [None]
  - HYPERSENSITIVITY [None]
  - OSTEOPOROSIS [None]
  - SPINAL FUSION SURGERY [None]
  - URINE CALCIUM INCREASED [None]
